FAERS Safety Report 23082448 (Version 1)
Quarter: 2023Q4

REPORT INFORMATION
  Report Type: Spontaneous
  Country: US (occurrence: US)
  Receive Date: 20231019
  Receipt Date: 20231019
  Transmission Date: 20240109
  Serious: Yes (Hospitalization, Other)
  Sender: FDA-Public Use
  Company Number: US-ALEMBIC PHARMACUETICALS LIMITED-2023SCAL000882

PATIENT

DRUGS (3)
  1. FLUOROURACIL [Suspect]
     Active Substance: FLUOROURACIL
     Indication: Colon cancer stage III
     Dosage: UNK
     Route: 065
  2. OXALIPLATIN [Suspect]
     Active Substance: OXALIPLATIN
     Indication: Colon cancer stage III
     Dosage: UNK
     Route: 065
  3. LEUCOVORIN [Concomitant]
     Active Substance: LEUCOVORIN\LEUCOVORIN CALCIUM
     Indication: Colon cancer stage III
     Dosage: UNK
     Route: 065

REACTIONS (9)
  - Acute coronary syndrome [Unknown]
  - Cardiac arrest [Unknown]
  - Electrocardiogram ST segment elevation [Unknown]
  - Ventricular hypokinesia [Recovering/Resolving]
  - Troponin increased [Unknown]
  - Ejection fraction decreased [Recovering/Resolving]
  - Arteriospasm coronary [Unknown]
  - Brain injury [Recovering/Resolving]
  - Cardiotoxicity [Unknown]
